FAERS Safety Report 10214793 (Version 3)
Quarter: 2014Q2

REPORT INFORMATION
  Report Type: Spontaneous
  Country: ES (occurrence: ES)
  Receive Date: 20140603
  Receipt Date: 20140627
  Transmission Date: 20141212
  Serious: Yes (Life-Threatening, Hospitalization, Disabling)
  Sender: FDA-Public Use
  Company Number: ES-ELI_LILLY_AND_COMPANY-ES201405005078

PATIENT
  Age: 39 Year
  Sex: Male

DRUGS (6)
  1. CYMBALTA [Suspect]
     Indication: DEPRESSION
     Dosage: 60 MG, QD
     Route: 048
     Dates: start: 201204, end: 201208
  2. CYMBALTA [Suspect]
     Dosage: 60 MG, QD
     Route: 048
     Dates: start: 201212, end: 201302
  3. CYMBALTA [Suspect]
     Dosage: 30 MG, QD
     Route: 048
     Dates: start: 201305, end: 201306
  4. CYMBALTA [Suspect]
     Dosage: 60 MG, QD
     Route: 048
     Dates: start: 201312, end: 20131222
  5. LORAZEPAM [Concomitant]
     Dosage: 1 MG, UNKNOWN
     Route: 065
  6. TOPIRAMATE [Concomitant]
     Dosage: 75 DF, UNKNOWN
     Route: 065

REACTIONS (5)
  - Myocardial infarction [Recovered/Resolved]
  - Angina pectoris [Unknown]
  - Angina pectoris [Unknown]
  - Angina pectoris [Unknown]
  - Chest pain [Not Recovered/Not Resolved]
